FAERS Safety Report 15879793 (Version 3)
Quarter: 2025Q4

REPORT INFORMATION
  Report Type: Spontaneous
  Country: US (occurrence: US)
  Receive Date: 20190128
  Receipt Date: 20251006
  Transmission Date: 20260117
  Serious: Yes (Other)
  Sender: PFIZER
  Company Number: US-MLMSERVICE-20190117-1582452-2

PATIENT
  Age: 60 Year
  Sex: Male

DRUGS (3)
  1. HYDROCORTISONE ACETATE [Suspect]
     Active Substance: HYDROCORTISONE ACETATE
     Indication: Immunosuppressant drug therapy
     Dosage: 10 MG, 1X/DAY
  2. TACROLIMUS [Suspect]
     Active Substance: TACROLIMUS
     Indication: Immunosuppressant drug therapy
     Dosage: 0.5 MG, 1X/DAY
  3. MYCOPHENOLIC ACID [Suspect]
     Active Substance: MYCOPHENOLIC ACID
     Indication: Immunosuppressant drug therapy
     Dosage: 1000 MG, 1X/DAY

REACTIONS (1)
  - Skin papilloma [Recovering/Resolving]
